FAERS Safety Report 10044323 (Version 1)
Quarter: 2014Q1

REPORT INFORMATION
  Report Type: Spontaneous
  Country: US (occurrence: None)
  Receive Date: 20140306
  Receipt Date: 20140306
  Transmission Date: 20141002
  Serious: Yes (Hospitalization, Disabling, Other)
  Sender: FDA-Public Use
  Company Number: 163-21880-13070832

PATIENT
  Age: 59 Year
  Sex: Female
  Weight: 129.28 kg

DRUGS (9)
  1. REVLIMID [Suspect]
     Indication: PLASMA CELL MYELOMA
     Route: 048
     Dates: start: 20090110
  2. HYZAAR (HYZAAR) (TABLETS) [Concomitant]
  3. LASIX (FUROSEMIDE) (TABLETS) [Concomitant]
  4. DEXAMETHASONE (DEXAMETHASONE) (UNKNOWN) [Concomitant]
  5. COUMADIN (WARFARIN SODIUM) (TABLETS) [Concomitant]
  6. ASPIRINE (ACETYLSALICYLIC ACID) (ENTERIC-COATED TABLET) [Concomitant]
  7. POTASSIUM GLUCONATE (POTASSIUM GLUCONATE) (UNKNOWN) [Concomitant]
  8. VELCADE (BORTEZOMIB) [Concomitant]
  9. PREDNISONE (PREDNISONE) (UNKNOWN) [Concomitant]

REACTIONS (4)
  - Confusional state [None]
  - Pneumonia [None]
  - Mastoiditis [None]
  - Upper respiratory tract infection [None]
